FAERS Safety Report 5520693-5 (Version None)
Quarter: 2007Q4

REPORT INFORMATION
  Report Type: 
  Country: None (occurrence: None)
  Receive Date: 20071119
  Receipt Date: 20071106
  Transmission Date: 20080405
  Serious: Yes (Other)
  Sender: FDA-Public Use
  Company Number: US-PFIZER INC-2007094335

PATIENT
  Sex: Female
  Weight: 104.54 kg

DRUGS (9)
  1. CHANTIX [Suspect]
     Indication: SMOKING CESSATION THERAPY
     Route: 048
  2. DILANTIN [Concomitant]
  3. PHENOBARBITAL TAB [Concomitant]
  4. LEXAPRO [Concomitant]
  5. TOPAMAX [Concomitant]
  6. ALL OTHER THERAPEUTIC PRODUCTS [Concomitant]
  7. DIAZEPAM [Concomitant]
  8. CELEBREX [Concomitant]
  9. ATENOLOL [Concomitant]

REACTIONS (3)
  - CONVULSION [None]
  - SHOULDER OPERATION [None]
  - WEIGHT INCREASED [None]
